FAERS Safety Report 23361946 (Version 1)
Quarter: 2024Q1

REPORT INFORMATION
  Report Type: Spontaneous
  Country: US (occurrence: US)
  Receive Date: 20240103
  Receipt Date: 20240103
  Transmission Date: 20240410
  Serious: Yes (Hospitalization, Other)
  Sender: FDA-Public Use
  Company Number: US-BRISTOL-MYERS SQUIBB COMPANY-2024-000275

PATIENT
  Age: 69 Year
  Sex: Female

DRUGS (1)
  1. LENALIDOMIDE [Suspect]
     Active Substance: LENALIDOMIDE
     Indication: Follicular lymphoma
     Dosage: TAKE 1 CAPSULE BY MOUTH DAILY ON DAYS 1-21 OF A 28-DAY CYCLE
     Route: 048
     Dates: end: 202312

REACTIONS (2)
  - Asthenia [Not Recovered/Not Resolved]
  - Pneumonia [Not Recovered/Not Resolved]
